FAERS Safety Report 10565270 (Version 1)
Quarter: 2014Q4

REPORT INFORMATION
  Report Type: Spontaneous
  Country: US (occurrence: None)
  Receive Date: 20141104
  Receipt Date: 20141104
  Transmission Date: 20150529
  Serious: No
  Sender: FDA-Public Use
  Company Number: None

PATIENT
  Age: 1 Year
  Sex: Male
  Weight: 8.24 kg

DRUGS (7)
  1. ANTITHYMOCYTE GLOBULIN (THYMOGLOBULIN; ATG RABBIT) [Suspect]
     Active Substance: LAPINE T-LYMPHOCYTE IMMUNE GLOBULIN
  2. BUSULFAN [Suspect]
     Active Substance: BUSULFAN
  3. CELLCEPT [Suspect]
     Active Substance: MYCOPHENOLATE MOFETIL\MYCOPHENOLATE MOFETIL HYDROCHLORIDE
  4. CYCLOPHOSPHAMIDE. [Suspect]
     Active Substance: CYCLOPHOSPHAMIDE
  5. MELPHALAN [Suspect]
     Active Substance: MELPHALAN
  6. MESNA. [Suspect]
     Active Substance: MESNA
  7. TACROLIMUS. [Suspect]
     Active Substance: TACROLIMUS

REACTIONS (5)
  - Cytomegalovirus viraemia [None]
  - Pancytopenia [None]
  - K-ras gene mutation [None]
  - Bone marrow failure [None]
  - Transplant failure [None]

NARRATIVE: CASE EVENT DATE: 20141012
